FAERS Safety Report 26180231 (Version 1)
Quarter: 2025Q4

REPORT INFORMATION
  Report Type: Spontaneous
  Country: US (occurrence: US)
  Receive Date: 20251219
  Receipt Date: 20251219
  Transmission Date: 20260117
  Serious: Yes (Hospitalization, Other)
  Sender: VERTEX
  Company Number: US-VERTEX PHARMACEUTICALS-2025-021343

PATIENT
  Age: 18 Year

DRUGS (2)
  1. TRIKAFTA [Suspect]
     Active Substance: ELEXACAFTOR\IVACAFTOR\TEZACAFTOR
     Indication: Cystic fibrosis
     Dosage: UNKNOWN DOSAGE REGIMEN
     Route: 061
  2. CREON [Concomitant]
     Active Substance: PANCRELIPASE AMYLASE\PANCRELIPASE LIPASE\PANCRELIPASE PROTEASE

REACTIONS (18)
  - Intussusception [Unknown]
  - Pneumonia fungal [Unknown]
  - Burkholderia cepacia complex infection [Unknown]
  - Diabetes mellitus [Recovering/Resolving]
  - Psychological trauma [Unknown]
  - Hypophagia [Unknown]
  - Dyspepsia [Unknown]
  - Feeling abnormal [Unknown]
  - Blood glucose decreased [Not Recovered/Not Resolved]
  - Vascular injury [Unknown]
  - Injection site nerve damage [Unknown]
  - Complication of device insertion [Unknown]
  - Pain in extremity [Unknown]
  - Catheter site pain [Unknown]
  - Psychiatric symptom [Unknown]
  - Emotional disorder [Unknown]
  - Substance use [Unknown]
  - Euphoric mood [Unknown]

NARRATIVE: CASE EVENT DATE: 20230301
